FAERS Safety Report 18817331 (Version 1)
Quarter: 2021Q1

REPORT INFORMATION
  Report Type: Spontaneous
  Country: FR (occurrence: FR)
  Receive Date: 20210201
  Receipt Date: 20210201
  Transmission Date: 20210419
  Serious: Yes (Hospitalization, Other)
  Sender: FDA-Public Use
  Company Number: FR-MYLANLABS-2020M1038225

PATIENT
  Age: 11 Year
  Sex: Male
  Weight: 19 kg

DRUGS (37)
  1. AZACITIDINE. [Suspect]
     Active Substance: AZACITIDINE
     Dosage: 75 MILLIGRAM/SQ. METER
     Route: 041
     Dates: start: 20200310
  2. LEVOCETIRIZINE [Concomitant]
     Active Substance: LEVOCETIRIZINE
     Indication: PROPHYLAXIS
     Dosage: 8 MILLIGRAM, QW (4 MILLIGRAM)
     Route: 048
     Dates: start: 20200125
  3. MICAFUNGIN. [Concomitant]
     Active Substance: MICAFUNGIN SODIUM
     Indication: ANTIFUNGAL PROPHYLAXIS
     Dosage: 105 MILLIGRAM, Q3W (35 MILLIGRAM)
     Route: 065
     Dates: start: 20200127
  4. ONDANSETRON [Concomitant]
     Active Substance: ONDANSETRON
     Dosage: 8 MILLIGRAM, QD (4 MILLIGRAM )
     Route: 048
     Dates: start: 20200224
  5. LEVOCETIRIZINE                     /01530202/ [Concomitant]
     Active Substance: LEVOCETIRIZINE DIHYDROCHLORIDE
     Indication: PROPHYLAXIS
     Dosage: 5 MILLIGRAM
     Route: 048
     Dates: start: 20191230
  6. AZACITIDINE. [Suspect]
     Active Substance: AZACITIDINE
     Dosage: 75 MILLIGRAM/SQ. METER
     Route: 041
     Dates: start: 20200130, end: 20200227
  7. VENETOCLAX. [Suspect]
     Active Substance: VENETOCLAX
     Indication: HAEMATOLOGICAL MALIGNANCY
     Dosage: 30 MILLIGRAM, QD
     Route: 048
     Dates: start: 20191230, end: 20191230
  8. LEVOCETIRIZINE [Concomitant]
     Active Substance: LEVOCETIRIZINE
     Indication: ANTIALLERGIC THERAPY
     Dosage: 5 MILLIGRAM
     Route: 048
     Dates: start: 20191230
  9. ACIDE TRANEXAMIQUE [Concomitant]
     Active Substance: TRANEXAMIC ACID
     Indication: TOOTH LOSS
  10. OSELTAMIVIR [Concomitant]
     Active Substance: OSELTAMIVIR
     Indication: INFLUENZA
     Dosage: 60 MILLIGRAM, QD
     Route: 048
     Dates: start: 20200221, end: 20200226
  11. VENETOCLAX. [Suspect]
     Active Substance: VENETOCLAX
     Dosage: 120 MILLIGRAM, QD
     Route: 048
     Dates: start: 20200101, end: 20200112
  12. LEVOCETIRIZINE                     /01530202/ [Concomitant]
     Active Substance: LEVOCETIRIZINE DIHYDROCHLORIDE
     Dosage: 8 MILLIGRAM, QW (4 MILLIGRAM)
     Route: 048
     Dates: start: 20200125
  13. BACTRIM [Concomitant]
     Active Substance: SULFAMETHOXAZOLE\TRIMETHOPRIM
     Indication: ANTIFUNGAL PROPHYLAXIS
     Dosage: 1500 MILLIGRAM, QW (500 MILLIGRAM)
     Route: 065
     Dates: start: 20191226
  14. POLARAMINE [Concomitant]
     Active Substance: DEXCHLORPHENIRAMINE MALEATE
     Indication: ANTIALLERGIC THERAPY
     Dosage: 2.5 MILLIGRAM, Q2D
     Route: 041
     Dates: start: 20200103
  15. ONDANSETRON [Concomitant]
     Active Substance: ONDANSETRON
     Indication: NAUSEA
     Dosage: 4 MILLIGRAM, QD
     Route: 041
     Dates: start: 20191230
  16. PANTOPRAZOLE [Concomitant]
     Active Substance: PANTOPRAZOLE
     Indication: PROPHYLAXIS
     Dosage: 20 MILLIGRAM, QD
     Route: 048
     Dates: start: 20200227
  17. AZACITIDINE. [Suspect]
     Active Substance: AZACITIDINE
     Indication: HAEMATOLOGICAL MALIGNANCY
     Dosage: 525 MILLIGRAM/SQ. METER, Q28D
     Route: 041
     Dates: start: 20200102, end: 20200108
  18. VENETOCLAX. [Suspect]
     Active Substance: VENETOCLAX
     Dosage: 120 MILLIGRAM, QD
     Route: 048
     Dates: start: 20200113, end: 20200227
  19. VENETOCLAX. [Suspect]
     Active Substance: VENETOCLAX
     Dosage: 120 MILLIGRAM, QD
     Route: 048
     Dates: start: 20200310
  20. HYDROXYCARBAMIDE [Concomitant]
     Active Substance: HYDROXYUREA
     Indication: BONE MARROW DISORDER
     Dosage: 1000 MILLIGRAM, QD
     Route: 048
     Dates: start: 20191230
  21. HYDROXYCARBAMIDE [Concomitant]
     Active Substance: HYDROXYUREA
     Dosage: 8 MILLIGRAM, QW (4 MILLIGRAM)
     Route: 048
     Dates: start: 20200125
  22. MICAFUNGIN. [Concomitant]
     Active Substance: MICAFUNGIN SODIUM
     Indication: NEUTROPENIA
     Dosage: 120 MILLIGRAM, QW (40 MILLIGRAM)
     Route: 065
     Dates: start: 20200127
  23. ONDANSETRON [Concomitant]
     Active Substance: ONDANSETRON
     Indication: VOMITING
     Dosage: 8 MILLIGRAM, QW (4 MILLIGRAM)
     Route: 048
     Dates: start: 20200125
  24. DEXTROSE. [Concomitant]
     Active Substance: DEXTROSE
     Indication: PROPHYLAXIS
     Dosage: 17250 MILLILITER
     Route: 041
     Dates: start: 20191230, end: 20200109
  25. VENETOCLAX. [Suspect]
     Active Substance: VENETOCLAX
     Dosage: 60 MILLIGRAM, QD
     Route: 048
     Dates: start: 20191231, end: 20191231
  26. BACTRIM [Concomitant]
     Active Substance: SULFAMETHOXAZOLE\TRIMETHOPRIM
     Dosage: 500 MILLIGRAM, QD
     Route: 041
     Dates: start: 20191230
  27. ONDANSETRON [Concomitant]
     Active Substance: ONDANSETRON
     Indication: PROPHYLAXIS OF NAUSEA AND VOMITING
     Dosage: UNK
  28. BACTRIM [Concomitant]
     Active Substance: SULFAMETHOXAZOLE\TRIMETHOPRIM
     Indication: PROPHYLAXIS OF NAUSEA AND VOMITING
     Dosage: 1500 MILLIGRAM, QW (500 MILLIGRAM)
     Route: 041
     Dates: start: 20191230
  29. ACIDE TRANEXAMIQUE [Concomitant]
     Active Substance: TRANEXAMIC ACID
     Indication: HAEMORRHAGE
     Dosage: 4 GRAM, QD
     Route: 061
     Dates: start: 20190113
  30. ZINC. [Concomitant]
     Active Substance: ZINC
     Indication: DENTAL DISORDER PROPHYLAXIS
     Dosage: 300 MILLILITER, QD
     Route: 061
     Dates: start: 20191230
  31. POLARAMINE [Concomitant]
     Active Substance: DEXCHLORPHENIRAMINE MALEATE
     Indication: PROPHYLAXIS
     Dosage: 2.5 MILLIGRAM, QD
     Route: 041
     Dates: start: 20200228, end: 20200305
  32. AZACITIDINE. [Suspect]
     Active Substance: AZACITIDINE
     Dosage: 525 MILLIGRAM/SQ. METER, Q28D
     Route: 041
     Dates: start: 20200102, end: 20200227
  33. MICAFUNGIN. [Concomitant]
     Active Substance: MICAFUNGIN SODIUM
     Dosage: UNK
  34. CHLORHEXIDINE [Concomitant]
     Active Substance: CHLORHEXIDINE
     Indication: DENTAL DISORDER PROPHYLAXIS
     Dosage: 300 MILLILITER, QD
     Route: 061
     Dates: start: 20191230
  35. HYDROCORTISONE. [Concomitant]
     Active Substance: HYDROCORTISONE
     Indication: PROPHYLAXIS
     Dosage: 50 MILLIGRAM, Q2D
     Route: 041
     Dates: start: 20200103
  36. SODIUM BICARBONATE. [Concomitant]
     Active Substance: SODIUM BICARBONATE
     Indication: DENTAL DISORDER PROPHYLAXIS
     Dosage: 300 MILLILITER, QD
     Route: 061
     Dates: start: 20191203
  37. RASBURICASE [Concomitant]
     Active Substance: RASBURICASE
     Indication: PROPHYLAXIS
     Dosage: 3 MILLIGRAM
     Route: 048
     Dates: start: 20191230, end: 20191230

REACTIONS (4)
  - Febrile neutropenia [Recovered/Resolved]
  - Influenza [Recovered/Resolved]
  - Device related infection [Recovered/Resolved]
  - Catheter site inflammation [Recovered/Resolved]

NARRATIVE: CASE EVENT DATE: 20200217
